FAERS Safety Report 23145196 (Version 1)
Quarter: 2023Q4

REPORT INFORMATION
  Report Type: Report from Study
  Country: KR (occurrence: KR)
  Receive Date: 20231103
  Receipt Date: 20231103
  Transmission Date: 20240110
  Serious: Yes (Other)
  Sender: FDA-Public Use
  Company Number: KR-MYLANLABS-2023M1115631

PATIENT
  Sex: Female
  Weight: 59 kg

DRUGS (31)
  1. TRASTUZUMAB [Suspect]
     Active Substance: TRASTUZUMAB
     Indication: HER2 positive breast cancer
     Dosage: 472 MILLIGRAM
     Route: 042
     Dates: start: 20190729, end: 20190729
  2. TRASTUZUMAB [Suspect]
     Active Substance: TRASTUZUMAB
     Dosage: 350 MILLIGRAM
     Route: 042
     Dates: start: 20190819, end: 20190819
  3. TRASTUZUMAB [Suspect]
     Active Substance: TRASTUZUMAB
     Dosage: 350 MILLIGRAM
     Route: 042
     Dates: start: 20190909, end: 20190909
  4. TRASTUZUMAB [Suspect]
     Active Substance: TRASTUZUMAB
     Dosage: 330 MILLIGRAM (START DATE: 30-SEP-2019)
     Route: 042
     Dates: end: 20190930
  5. TRASTUZUMAB [Suspect]
     Active Substance: TRASTUZUMAB
     Dosage: 330 MILLIGRAM (START DATE: 23-OCT-2019)
     Route: 042
     Dates: end: 20191023
  6. TRASTUZUMAB [Suspect]
     Active Substance: TRASTUZUMAB
     Dosage: 330 MILLIGRAM (START DATE: 20-NOV-2019)
     Route: 042
     Dates: end: 20191120
  7. TRASTUZUMAB [Suspect]
     Active Substance: TRASTUZUMAB
     Dosage: 330 MILLIGRAM (START DATE: 06-JAN-2020)
     Route: 042
     Dates: end: 20200106
  8. TRASTUZUMAB [Suspect]
     Active Substance: TRASTUZUMAB
     Dosage: 330 MILLIGRAM (START DATE: 29-JAN-2020)
     Route: 042
     Dates: end: 20200129
  9. TRASTUZUMAB [Suspect]
     Active Substance: TRASTUZUMAB
     Dosage: 330 MILLIGRAM (START DATE: 19-FEB-2020)
     Route: 042
     Dates: end: 20200219
  10. TRASTUZUMAB [Suspect]
     Active Substance: TRASTUZUMAB
     Dosage: 458 MILLIGRAM (START DATE: 02-APR-2020)
     Route: 042
     Dates: end: 20200402
  11. TRASTUZUMAB [Suspect]
     Active Substance: TRASTUZUMAB
     Dosage: 330 MILLIGRAM (START DATE: 22-APR-2020)
     Route: 042
     Dates: end: 20200422
  12. TRASTUZUMAB [Suspect]
     Active Substance: TRASTUZUMAB
     Dosage: 330 MILLIGRAM (START DATE: 13-MAY-2020)
     Route: 042
     Dates: end: 20200513
  13. TRASTUZUMAB [Suspect]
     Active Substance: TRASTUZUMAB
     Dosage: 330 MILLIGRAM (START DATE: 03-JUN-2020)
     Route: 042
     Dates: end: 20200603
  14. TRASTUZUMAB [Suspect]
     Active Substance: TRASTUZUMAB
     Dosage: 330 MILLIGRAM (START DATE: 24-JUN-2020)
     Route: 042
     Dates: end: 20200624
  15. TRASTUZUMAB [Suspect]
     Active Substance: TRASTUZUMAB
     Dosage: 330 MILLIGRAM (START DATE: 15-JUL-2020)
     Route: 042
     Dates: end: 20200715
  16. TRASTUZUMAB [Suspect]
     Active Substance: TRASTUZUMAB
     Dosage: 330 MILLIGRAM (START DATE: 05-AUG-2020)
     Route: 042
     Dates: end: 20200805
  17. FERROUS SULFATE [Concomitant]
     Active Substance: FERROUS SULFATE
     Indication: Anaemia prophylaxis
     Dosage: UNK
     Route: 048
  18. CALCIUM POLYSTYRENE SULFONATE [Concomitant]
     Active Substance: CALCIUM POLYSTYRENE SULFONATE
     Indication: End stage renal disease
     Dosage: UNK
     Route: 048
  19. BISOPROLOL FUMARATE [Concomitant]
     Active Substance: BISOPROLOL FUMARATE
     Indication: Hypertension
     Dosage: UNK
     Route: 048
  20. BISOPROLOL FUMARATE [Concomitant]
     Active Substance: BISOPROLOL FUMARATE
     Dosage: UNK (START DATE: 25-MAR-2020)
     Route: 048
     Dates: end: 20200423
  21. VALSARTAN [Concomitant]
     Active Substance: VALSARTAN
     Indication: Hypertension
     Dosage: UNK
     Route: 048
  22. VALSARTAN [Concomitant]
     Active Substance: VALSARTAN
     Dosage: UNK
     Route: 048
     Dates: start: 2019, end: 20191101
  23. ASPIRIN [Concomitant]
     Active Substance: ASPIRIN
     Indication: Hypertension
     Dosage: UNK
     Route: 048
  24. FUROSEMIDE [Concomitant]
     Active Substance: FUROSEMIDE
     Indication: Hypertension
     Dosage: UNK
     Route: 048
  25. ALLOPURINOL [Concomitant]
     Active Substance: ALLOPURINOL
     Indication: Gout
     Dosage: UNK
     Route: 048
  26. SEVELAMER CARBONATE [Concomitant]
     Active Substance: SEVELAMER CARBONATE
     Indication: End stage renal disease
     Dosage: UNK (START DATE: 11-SEP-2019)
     Route: 048
     Dates: end: 20191101
  27. NIFEDIPINE [Concomitant]
     Active Substance: NIFEDIPINE
     Indication: Hypertension
     Dosage: UNK
     Route: 048
     Dates: start: 2019, end: 20191101
  28. DONEPEZIL HYDROCHLORIDE [Concomitant]
     Active Substance: DONEPEZIL HYDROCHLORIDE
     Indication: Prophylaxis
     Dosage: UNK
     Route: 048
     Dates: start: 2019, end: 20191101
  29. LIPITOR [Concomitant]
     Active Substance: ATORVASTATIN CALCIUM
     Indication: Prophylaxis
     Dosage: UNK
     Route: 048
     Dates: start: 2019, end: 20200423
  30. AMLODIPINE BESYLATE AND VALSARTAN [Concomitant]
     Active Substance: AMLODIPINE BESYLATE\VALSARTAN
     Indication: Hypertension
     Dosage: UNK (START DATE: 23-MAR-2020)
     Route: 048
  31. CHOLINE ALFOSCERATE [Concomitant]
     Active Substance: CHOLINE ALFOSCERATE
     Indication: Anxiety
     Dosage: UNK (START DATE: 25-MAR-2020)
     Route: 048
     Dates: end: 20200423

REACTIONS (3)
  - Neutropenia [Recovered/Resolved]
  - Large intestine infection [Recovered/Resolved]
  - Pruritus [Recovered/Resolved]

NARRATIVE: CASE EVENT DATE: 20190910
